FAERS Safety Report 4928400-1 (Version None)
Quarter: 2006Q1

REPORT INFORMATION
  Report Type: 
  Country: None (occurrence: None)
  Receive Date: 20060223
  Receipt Date: 20050811
  Transmission Date: 20060701
  Serious: Yes (Other)
  Sender: FDA-Public Use
  Company Number: 2005101257

PATIENT
  Age: 44 Year
  Sex: Male
  Weight: 63.5036 kg

DRUGS (1)
  1. SUDAFED (PSEUDOEPHEDRINE) [Suspect]
     Indication: EUPHORIC MOOD
     Dosage: 8-10 TABLETS AT ONCE, ORAL
     Route: 048

REACTIONS (3)
  - DYSARTHRIA [None]
  - EXCITABILITY [None]
  - INTENTIONAL OVERDOSE [None]
